FAERS Safety Report 16873396 (Version 1)
Quarter: 2019Q4

REPORT INFORMATION
  Report Type: Spontaneous
  Country: US (occurrence: US)
  Receive Date: 20191001
  Receipt Date: 20191001
  Transmission Date: 20200122
  Serious: No
  Sender: FDA-Public Use
  Company Number: US-PFIZER INC-2019418723

PATIENT
  Age: 69 Year
  Sex: Female
  Weight: 82 kg

DRUGS (1)
  1. PREMPRO [Suspect]
     Active Substance: ESTROGENS, CONJUGATED\MEDROXYPROGESTERONE ACETATE
     Dosage: UNK, 1X/DAY
     Dates: start: 2004, end: 201902

REACTIONS (3)
  - Asthenia [Not Recovered/Not Resolved]
  - Hormone level abnormal [Unknown]
  - Night sweats [Not Recovered/Not Resolved]

NARRATIVE: CASE EVENT DATE: 2019
